FAERS Safety Report 8292310-5 (Version None)
Quarter: 2012Q2

REPORT INFORMATION
  Report Type: 
  Country: None (occurrence: None)
  Receive Date: 20120417
  Receipt Date: 20120411
  Transmission Date: 20120825
  Serious: Yes (Hospitalization)
  Sender: FDA-Public Use
  Company Number: US-ELI_LILLY_AND_COMPANY-US201004003134

PATIENT
  Sex: Female

DRUGS (16)
  1. HYDROCODONE [Concomitant]
  2. SINEMET [Concomitant]
  3. HYDROXYZINE [Concomitant]
  4. FORTEO [Suspect]
     Dosage: 20 UG, QD
     Route: 065
  5. FORTEO [Suspect]
     Dosage: 20 UG, QD
     Route: 065
  6. CYMBALTA [Suspect]
     Indication: DEPRESSION
     Dosage: 60 MG, DAILY (1/D)
     Route: 065
     Dates: start: 20100101
  7. VICODIN [Concomitant]
  8. CARBIDOPA AND LEVODOPA [Concomitant]
  9. CLONAZEPAM [Concomitant]
  10. PRAVASTATIN [Concomitant]
  11. VAGIFEM [Concomitant]
  12. FORTEO [Suspect]
     Dosage: 20 UG, DAILY (1/D)
     Route: 065
  13. FORTEO [Suspect]
     Indication: OSTEOPOROSIS
     Dosage: 20 UG, DAILY (1/D)
     Route: 065
     Dates: start: 20100101
  14. FORTEO [Suspect]
     Dosage: 20 UG, QD
     Route: 065
  15. AZILECT [Concomitant]
  16. PANTOPRAZOLE [Concomitant]

REACTIONS (30)
  - ABDOMINAL DISCOMFORT [None]
  - FALL [None]
  - DRY MOUTH [None]
  - LUMBAR VERTEBRAL FRACTURE [None]
  - BALANCE DISORDER [None]
  - ANXIETY [None]
  - NAUSEA [None]
  - BACK DISORDER [None]
  - FRACTURE [None]
  - VOMITING [None]
  - CONSTIPATION [None]
  - PARKINSON'S DISEASE [None]
  - NERVOUS SYSTEM DISORDER [None]
  - MUSCULAR WEAKNESS [None]
  - CONTUSION [None]
  - HYPERSENSITIVITY [None]
  - OFF LABEL USE [None]
  - HERPES ZOSTER [None]
  - MALAISE [None]
  - FEELING ABNORMAL [None]
  - RADIUS FRACTURE [None]
  - FACIAL BONES FRACTURE [None]
  - FACE INJURY [None]
  - EXCORIATION [None]
  - MIDDLE INSOMNIA [None]
  - PAIN [None]
  - RASH [None]
  - GASTROINTESTINAL DISORDER [None]
  - MUSCLE SPASMS [None]
  - FORMICATION [None]
